FAERS Safety Report 6595276-9 (Version None)
Quarter: 2010Q1

REPORT INFORMATION
  Report Type: 
  Country: None (occurrence: None)
  Receive Date: 20100212
  Receipt Date: 20100127
  Transmission Date: 20100710
  Serious: Yes (Death)
  Sender: FDA-Public Use
  Company Number: KV200801609

PATIENT
  Age: 59 Year
  Sex: Female
  Weight: 56.7 kg

DRUGS (22)
  1. MORPHINE SULFATE [Suspect]
     Indication: PAIN
     Dosage: ORAL
     Route: 048
     Dates: start: 20080304, end: 20080606
  2. TRAMADOL HCL [Concomitant]
  3. METHADONE HCL [Concomitant]
  4. DOXEPIN HCL [Concomitant]
  5. ATROPINE [Concomitant]
  6. DIPHENHYDRAMINE HCL [Concomitant]
  7. CLONAZEPAM [Concomitant]
  8. GABAPENTIN [Concomitant]
  9. PROMETHAZINE [Concomitant]
  10. TRICYCLIC ANTIDEPRESSANTS [Concomitant]
  11. PROTONIX [Concomitant]
  12. ZOLOFT /01011301/ (SERTRALINE) [Concomitant]
  13. LORTAB /00607101 (HYDROCODONE BITARTTRATE, PARACETAMOL) [Concomitant]
  14. PRILOSEC /00661201/ (OMEPRAZOLE) [Concomitant]
  15. FERROUS SULFATE TAB [Concomitant]
  16. DICYCLOMINE /00068601/ (DICYCLOVERINE) [Concomitant]
  17. CYCLOBENZAPRINE [Concomitant]
  18. LORATADINE [Concomitant]
  19. METHYLPREDNISOLONE [Concomitant]
  20. ATEROL (SULOFEXIDE) [Concomitant]
  21. OXYCODONE HCL [Concomitant]
  22. PROZAC [Concomitant]

REACTIONS (10)
  - ACCIDENTAL DEATH [None]
  - ACCIDENTAL OVERDOSE [None]
  - CARDIAC ARREST [None]
  - DRUG TOXICITY [None]
  - EMPHYSEMA [None]
  - FALL [None]
  - HAEMORRHAGE [None]
  - MELANOCYTIC NAEVUS [None]
  - NASAL CONGESTION [None]
  - PRODUCT QUALITY ISSUE [None]
